FAERS Safety Report 12111281 (Version 1)
Quarter: 2016Q1

REPORT INFORMATION
  Report Type: Spontaneous
  Country: FR (occurrence: FR)
  Receive Date: 20160224
  Receipt Date: 20160224
  Transmission Date: 20160526
  Serious: Yes (Other)
  Sender: FDA-Public Use
  Company Number: FR-JAZZ-2015-FR-009101

PATIENT
  Age: 34 Year
  Sex: Female
  Weight: 40 kg

DRUGS (5)
  1. MORPHINE SULFATE. [Suspect]
     Active Substance: MORPHINE SULFATE
     Indication: ANALGESIC THERAPY
     Dosage: 0.416 MG, QH
     Route: 037
     Dates: start: 20130223
  2. PRIALT [Suspect]
     Active Substance: ZICONOTIDE ACETATE
     Dosage: .0104 ?G, QH
     Route: 037
     Dates: start: 20130223
  3. NAROPIN [Suspect]
     Active Substance: ROPIVACAINE HYDROCHLORIDE
     Indication: ANALGESIC THERAPY
     Dosage: 1.666 ?G, QH
     Route: 037
  4. SUFENTANIL CITRATE. [Concomitant]
     Active Substance: SUFENTANIL CITRATE
     Dosage: 400 ?G, QD
     Route: 042
     Dates: start: 20130213
  5. PRIALT [Suspect]
     Active Substance: ZICONOTIDE ACETATE
     Indication: ANALGESIC THERAPY
     Dosage: 0.0229 ?G, QH
     Route: 037
     Dates: start: 20130223, end: 20130308

REACTIONS (1)
  - Mania [Recovering/Resolving]

NARRATIVE: CASE EVENT DATE: 20130307
